FAERS Safety Report 8047662-8 (Version None)
Quarter: 2012Q1

REPORT INFORMATION
  Report Type: 
  Country: None (occurrence: None)
  Receive Date: 20120116
  Receipt Date: 20120112
  Transmission Date: 20120608
  Serious: No
  Sender: FDA-Public Use
  Company Number: US-B.I. PHARMACEUTICALS,INC./RIDGEFIELD-2012-BP-00755BP

PATIENT

DRUGS (2)
  1. PRADAXA [Suspect]
  2. MULTAQ [Concomitant]

REACTIONS (1)
  - RENAL PAIN [None]
